FAERS Safety Report 9805997 (Version 2)
Quarter: 2014Q2

REPORT INFORMATION
  Report Type: Spontaneous
  Country: GB (occurrence: None)
  Receive Date: 20140107
  Receipt Date: 20140528
  Transmission Date: 20141212
  Serious: Yes (Hospitalization, Other)
  Sender: FDA-Public Use
  Company Number: AUR-APL-2014-00021

PATIENT
  Age: 80 Year
  Sex: Male

DRUGS (1)
  1. PIOGLITAZONE [Suspect]
     Indication: DIABETES MELLITUS
     Dosage: 75 MG (75 MG, 1 IN 1 D), UNKNOWN
     Dates: start: 201301, end: 201305

REACTIONS (19)
  - Drug prescribing error [None]
  - Incorrect dose administered [None]
  - Malaise [None]
  - General physical health deterioration [None]
  - Confusional state [None]
  - Sleep talking [None]
  - Disturbance in attention [None]
  - Hallucination, auditory [None]
  - Apathy [None]
  - Activities of daily living impaired [None]
  - Speech disorder [None]
  - Road traffic accident [None]
  - Off label use [None]
  - Orthostatic hypotension [None]
  - Campylobacter infection [None]
  - Back pain [None]
  - Spinal column stenosis [None]
  - Contusion [None]
  - Fall [None]
